FAERS Safety Report 8347686-7 (Version None)
Quarter: 2012Q2

REPORT INFORMATION
  Report Type: 
  Country: None (occurrence: None)
  Receive Date: 20120509
  Receipt Date: 20120503
  Transmission Date: 20120825
  Serious: Yes (Hospitalization)
  Sender: FDA-Public Use
  Company Number: SE-MERCK-1205USA00548

PATIENT
  Age: 63 Year
  Sex: Female

DRUGS (3)
  1. OPTINATE SEPTIMUM [Concomitant]
     Route: 065
  2. TENORMIN [Concomitant]
     Route: 065
  3. ZOCOR [Suspect]
     Indication: HYPERCHOLESTEROLAEMIA
     Route: 048
     Dates: start: 20030101, end: 20090703

REACTIONS (1)
  - IDIOPATHIC THROMBOCYTOPENIC PURPURA [None]
